FAERS Safety Report 18844321 (Version 1)
Quarter: 2021Q1

REPORT INFORMATION
  Report Type: Report from Study
  Country: US (occurrence: US)
  Receive Date: 20210203
  Receipt Date: 20210203
  Transmission Date: 20210419
  Serious: No
  Sender: FDA-Public Use
  Company Number: US-EXELIXIS-CABO-19025962

PATIENT
  Sex: Male

DRUGS (1)
  1. CABOMETYX [Suspect]
     Active Substance: CABOZANTINIB S-MALATE
     Indication: RENAL CANCER
     Dosage: 40 MG, QD
     Dates: start: 20191024, end: 20191217

REACTIONS (13)
  - Rhinalgia [Recovering/Resolving]
  - Taste disorder [Recovering/Resolving]
  - Skin ulcer [Unknown]
  - Malignant neoplasm progression [Unknown]
  - Sinus disorder [Recovering/Resolving]
  - Glossodynia [Recovering/Resolving]
  - Fatigue [Recovering/Resolving]
  - Lip pain [Recovering/Resolving]
  - Blood pressure increased [Unknown]
  - Oropharyngeal pain [Unknown]
  - Pain of skin [Recovering/Resolving]
  - Impaired healing [Recovering/Resolving]
  - Rash [Recovering/Resolving]
